APPROVED DRUG PRODUCT: MIRABEGRON
Active Ingredient: MIRABEGRON
Strength: 25MG
Dosage Form/Route: TABLET, EXTENDED RELEASE;ORAL
Application: A209488 | Product #001 | TE Code: AB
Applicant: ZYDUS PHARMACEUTICALS USA INC
Approved: Sep 29, 2022 | RLD: No | RS: No | Type: RX